FAERS Safety Report 21349662 (Version 1)
Quarter: 2022Q3

REPORT INFORMATION
  Report Type: Spontaneous
  Country: PL (occurrence: PL)
  Receive Date: 20220919
  Receipt Date: 20220919
  Transmission Date: 20221027
  Serious: Yes (Hospitalization, Other)
  Sender: FDA-Public Use
  Company Number: PL-PFIZER INC-202201133464

PATIENT
  Age: 37 Year

DRUGS (6)
  1. ATORVASTATIN CALCIUM [Suspect]
     Active Substance: ATORVASTATIN CALCIUM
  2. ASPIRIN [Suspect]
     Active Substance: ASPIRIN
  3. ENOXAPARIN [Suspect]
     Active Substance: ENOXAPARIN
  4. CAPTOPRIL [Suspect]
     Active Substance: CAPTOPRIL
  5. BISOPROLOL [Suspect]
     Active Substance: BISOPROLOL
  6. NEBIVOLOL [Suspect]
     Active Substance: NEBIVOLOL

REACTIONS (1)
  - Troponin increased [Unknown]
